FAERS Safety Report 13755612 (Version 1)
Quarter: 2017Q3

REPORT INFORMATION
  Report Type: Spontaneous
  Country: JP (occurrence: JP)
  Receive Date: 20170714
  Receipt Date: 20170714
  Transmission Date: 20171127
  Serious: Yes (Hospitalization, Other)
  Sender: FDA-Public Use
  Company Number: JP-BRISTOL-MYERS SQUIBB COMPANY-BMS-2017-031184

PATIENT
  Age: 93 Year
  Sex: Female
  Weight: 45.4 kg

DRUGS (2)
  1. BISOPROLOL FUMARATE. [Concomitant]
     Active Substance: BISOPROLOL FUMARATE
     Indication: HEART RATE
     Dosage: 2.5 MG, QD
     Route: 048
     Dates: start: 20150904
  2. ELIQUIS [Suspect]
     Active Substance: APIXABAN
     Indication: CEREBROVASCULAR ACCIDENT PROPHYLAXIS
     Dosage: 2.5 MG, BID
     Route: 048
     Dates: start: 20140627

REACTIONS (7)
  - Fall [Unknown]
  - Subdural haematoma [Unknown]
  - Cardiac failure chronic [Recovering/Resolving]
  - Haemorrhage intracranial [Recovered/Resolved with Sequelae]
  - Pneumonia aspiration [Recovering/Resolving]
  - Pubis fracture [Unknown]
  - Off label use [Unknown]

NARRATIVE: CASE EVENT DATE: 20160921
